FAERS Safety Report 25496174 (Version 1)
Quarter: 2025Q2

REPORT INFORMATION
  Report Type: Spontaneous
  Country: CN (occurrence: CN)
  Receive Date: 20250630
  Receipt Date: 20250630
  Transmission Date: 20250716
  Serious: Yes (Other)
  Sender: PFIZER
  Company Number: CN-PFIZER INC-PV202500075838

PATIENT
  Age: 56 Year
  Sex: Male

DRUGS (1)
  1. CYTARABINE [Suspect]
     Active Substance: CYTARABINE
     Indication: Acute myeloid leukaemia
     Dosage: 4 G, 2X/DAY
     Route: 041
     Dates: start: 20250606, end: 20250607

REACTIONS (3)
  - Erythema [Recovering/Resolving]
  - Pruritus [Recovered/Resolved]
  - Hypersensitivity [Recovering/Resolving]

NARRATIVE: CASE EVENT DATE: 20250609
